FAERS Safety Report 13937042 (Version 2)
Quarter: 2017Q3

REPORT INFORMATION
  Report Type: Spontaneous
  Country: BR (occurrence: BR)
  Receive Date: 20170905
  Receipt Date: 20170908
  Transmission Date: 20171127
  Serious: Yes (Hospitalization)
  Sender: FDA-Public Use
  Company Number: BR-FERRINGPH-2017FE04242

PATIENT

DRUGS (7)
  1. PICOPREP [Suspect]
     Active Substance: ANHYDROUS CITRIC ACID\MAGNESIUM OXIDE\SODIUM PICOSULFATE
     Indication: BOWEL PREPARATION
     Dosage: 2 SACHET AT MIDNIGHT AND 2 SACHET IN THE MORNING AT 8.00 AM
     Route: 048
     Dates: start: 20170820, end: 20170821
  2. DIOVAN HCT [Concomitant]
     Active Substance: HYDROCHLOROTHIAZIDE\VALSARTAN
     Indication: HYPERTENSION
     Dosage: 1 TABLET, DAILY
     Route: 048
  3. REDOXON + ZINC [Concomitant]
     Indication: HYPOZINCAEMIA
     Dosage: 1 TABLET, DAILY
     Route: 048
  4. REDOXON + ZINC [Concomitant]
     Indication: HYPOVITAMINOSIS
  5. FORASEQ [Concomitant]
     Active Substance: BUDESONIDE\FORMOTEROL FUMARATE
     Indication: ASTHMA
     Dosage: UNKNOWN
     Route: 050
  6. MILK OF MAGNESIA [Concomitant]
     Active Substance: MAGNESIUM HYDROXIDE
     Indication: NAUSEA
     Dosage: AS NEEDED
     Route: 048
  7. LUFTAL                             /06269601/ [Concomitant]
     Dosage: AS NEEDED
     Route: 065

REACTIONS (8)
  - Diarrhoea [Recovered/Resolved]
  - Off label use [Recovered/Resolved]
  - Drug ineffective [Recovered/Resolved]
  - Haemorrhoids thrombosed [Recovered/Resolved]
  - Haemorrhoidal haemorrhage [Recovered/Resolved]
  - Rectal discharge [Recovered/Resolved]
  - Overdose [Recovered/Resolved]
  - Pain [Recovered/Resolved]

NARRATIVE: CASE EVENT DATE: 20170820
